FAERS Safety Report 4521686-7 (Version None)
Quarter: 2004Q4

REPORT INFORMATION
  Report Type: 
  Country: None (occurrence: None)
  Receive Date: 20041206
  Receipt Date: 20041125
  Transmission Date: 20050328
  Serious: Yes (Life-Threatening)
  Sender: FDA-Public Use
  Company Number: 2003AP03972

PATIENT
  Age: 77 Year
  Sex: Male

DRUGS (6)
  1. SEROQUEL [Suspect]
     Indication: DELUSION
     Dosage: 100 MG DAILY PO
     Route: 048
     Dates: start: 20030823, end: 20031010
  2. SEROQUEL [Suspect]
     Indication: HALLUCINATION
     Dosage: 100 MG DAILY PO
     Route: 048
     Dates: start: 20030823, end: 20031010
  3. CRAVIT [Concomitant]
  4. TELESMIN [Concomitant]
  5. RISPERDAL [Concomitant]
  6. GRAMALIL [Concomitant]

REACTIONS (5)
  - BLOOD CREATINE PHOSPHOKINASE INCREASED [None]
  - FRACTURE [None]
  - PLATELET COUNT DECREASED [None]
  - PNEUMONIA [None]
  - PYREXIA [None]
